FAERS Safety Report 20429421 (Version 1)
Quarter: 2022Q1

REPORT INFORMATION
  Report Type: Spontaneous
  Country: NO (occurrence: NO)
  Receive Date: 20220204
  Receipt Date: 20220204
  Transmission Date: 20220424
  Serious: Yes (Other)
  Sender: FDA-Public Use
  Company Number: None

PATIENT
  Age: 19 Year
  Sex: Female

DRUGS (1)
  1. ULIPRISTAL ACETATE [Suspect]
     Active Substance: ULIPRISTAL ACETATE
     Dosage: AS A SINGLE DOSE.
     Route: 048
     Dates: start: 20210801, end: 20210801

REACTIONS (18)
  - Syncope [Recovered/Resolved]
  - Loss of consciousness [Unknown]
  - Sensory loss [Unknown]
  - Chest pain [Recovering/Resolving]
  - Cold sweat [Unknown]
  - Paraesthesia [Unknown]
  - Fall [Unknown]
  - Pallor [Unknown]
  - Dyspnoea [Unknown]
  - Pyrexia [Unknown]
  - Vomiting [Recovered/Resolved]
  - Chills [Unknown]
  - Feeling hot [Unknown]
  - Tremor [Unknown]
  - Visual impairment [Unknown]
  - Nausea [Unknown]
  - Abdominal pain [Recovering/Resolving]
  - Headache [Unknown]

NARRATIVE: CASE EVENT DATE: 20210801
